FAERS Safety Report 7356650-6 (Version None)
Quarter: 2011Q1

REPORT INFORMATION
  Report Type: 
  Country: None (occurrence: None)
  Receive Date: 20110316
  Receipt Date: 20110301
  Transmission Date: 20110831
  Serious: Yes (Disabling, Other)
  Sender: FDA-Public Use
  Company Number: BR-GENENTECH-288196

PATIENT
  Sex: Female
  Weight: 118 kg

DRUGS (20)
  1. DIOVAN [Concomitant]
     Indication: HYPERTENSION
     Dosage: 30 MG, UNK
  2. METHOTREXATE [Concomitant]
     Indication: RHEUMATOID ARTHRITIS
     Dosage: 5 MG, 1/WEEK
     Dates: start: 20050101
  3. RIVOTRIL [Concomitant]
     Indication: PRODUCT USED FOR UNKNOWN INDICATION
     Dosage: 2 MG, QD
  4. FOLIC ACID [Concomitant]
     Indication: PRODUCT USED FOR UNKNOWN INDICATION
     Dosage: 2 MG, QD
  5. PREDNISONE [Concomitant]
     Dosage: 3 MG, UNK
  6. OMEPRAZOLE [Concomitant]
     Indication: PRODUCT USED FOR UNKNOWN INDICATION
     Dosage: 20 MG, UNK
  7. RITUXIMAB [Suspect]
     Indication: RHEUMATOID ARTHRITIS
     Dosage: 100 MG/10 ML, UNK
     Route: 065
     Dates: start: 20090217, end: 20100301
  8. OMEPRAZOLE [Concomitant]
     Dosage: 30 MG, UNK
  9. FOLIC ACID [Concomitant]
     Dosage: 5 MG, UNK
  10. NAPROXEN [Concomitant]
     Indication: PRODUCT USED FOR UNKNOWN INDICATION
     Dosage: 500 MG, QD
  11. RITUXIMAB [Suspect]
     Dosage: UNK
     Route: 065
     Dates: start: 20100819
  12. FLUOXETINE [Suspect]
     Indication: PRODUCT USED FOR UNKNOWN INDICATION
     Dosage: 40 MG, UNK
     Route: 065
  13. METHOTREXATE [Concomitant]
     Dosage: 4 MG, UNK
  14. FOLIC ACID [Concomitant]
     Dosage: 2.5 MG, UNK
  15. PREDNISONE [Concomitant]
     Indication: PRODUCT USED FOR UNKNOWN INDICATION
     Dosage: 5 MG, QD
  16. MIOFLEX A [Concomitant]
     Indication: BONE PAIN
     Dosage: 160 MG, UNK
  17. AMLODIPINE BESYLATE/VALSARTAN [Concomitant]
     Indication: HYPERTENSION
     Dosage: 165 MG, QD
  18. PREDNISONE [Concomitant]
     Dosage: 2 MG, UNK
  19. FUROSEMIDE [Concomitant]
     Indication: PRODUCT USED FOR UNKNOWN INDICATION
     Dosage: 40 MG, QD
  20. ABLOK [Concomitant]
     Indication: PRODUCT USED FOR UNKNOWN INDICATION
     Dosage: 160 MG, UNK

REACTIONS (20)
  - MUSCULAR WEAKNESS [None]
  - ANAEMIA [None]
  - MUSCULOSKELETAL PAIN [None]
  - GAIT DISTURBANCE [None]
  - WEIGHT INCREASED [None]
  - DYSPNOEA [None]
  - PAIN IN EXTREMITY [None]
  - BONE PAIN [None]
  - ANXIETY [None]
  - DRUG INEFFECTIVE [None]
  - BONE DENSITY DECREASED [None]
  - SLEEP DISORDER [None]
  - ILL-DEFINED DISORDER [None]
  - GROIN PAIN [None]
  - ARTHRALGIA [None]
  - URINARY TRACT INFECTION [None]
  - SOMNOLENCE [None]
  - OEDEMA PERIPHERAL [None]
  - ARTHROPATHY [None]
  - CRYING [None]
